FAERS Safety Report 7878885-6 (Version None)
Quarter: 2011Q4

REPORT INFORMATION
  Report Type: 
  Country: None (occurrence: None)
  Receive Date: 20111024
  Receipt Date: 20110811
  Transmission Date: 20120403
  Serious: Yes (Other)
  Sender: FDA-Public Use
  Company Number: AMAG201100178

PATIENT
  Age: 31 Year
  Sex: Female
  Weight: 54.9 kg

DRUGS (10)
  1. FERAHEME [Suspect]
     Indication: IRON DEFICIENCY ANAEMIA
     Dosage: 60 MG, SINGLE, INTRAVENOUS
     Route: 042
     Dates: start: 20110810, end: 20110810
  2. FERAHEME [Suspect]
     Indication: MALABSORPTION
     Dosage: 60 MG, SINGLE, INTRAVENOUS
     Route: 042
     Dates: start: 20110810, end: 20110810
  3. FERAHEME [Suspect]
     Indication: MENORRHAGIA
     Dosage: 60 MG, SINGLE, INTRAVENOUS
     Route: 042
     Dates: start: 20110810, end: 20110810
  4. ELAVIL [Concomitant]
  5. ACETAMINOPHEN [Concomitant]
  6. DIGOXIN [Concomitant]
  7. MULTI-VITAMINS VITAFIT (CALCIUM PATOTHENATE, FOLIC ACID, VITAMINS NOS) [Concomitant]
  8. VICODIN (HYDROCORODINE BITARTRATE, PARACETAMOL) [Concomitant]
  9. DEXAMETHASONE SODIUM PHOSPHATE [Concomitant]
  10. DIPHENHYDRAMINE HCL [Concomitant]

REACTIONS (8)
  - NAUSEA [None]
  - HYPERTENSION [None]
  - CHEST DISCOMFORT [None]
  - TACHYCARDIA [None]
  - THROAT IRRITATION [None]
  - RASH [None]
  - SINUS CONGESTION [None]
  - PRURITUS [None]
